FAERS Safety Report 6465220-3 (Version None)
Quarter: 2009Q4

REPORT INFORMATION
  Report Type: 
  Country: None (occurrence: None)
  Receive Date: 20091124
  Receipt Date: 20091110
  Transmission Date: 20100525
  Serious: No
  Sender: FDA-Public Use
  Company Number: 008013

PATIENT

DRUGS (1)
  1. PLETAL [Suspect]
     Route: 048

REACTIONS (1)
  - NEPHROTIC SYNDROME [None]
